FAERS Safety Report 25960863 (Version 1)
Quarter: 2025Q4

REPORT INFORMATION
  Report Type: Spontaneous
  Country: EU (occurrence: EU)
  Receive Date: 20251027
  Receipt Date: 20251027
  Transmission Date: 20260119
  Serious: Yes (Other)
  Sender: Medicap Laboratories
  Company Number: EU-Medicap-000088

PATIENT
  Age: 73 Year
  Sex: Female

DRUGS (3)
  1. OXAZEPAM [Concomitant]
     Active Substance: OXAZEPAM
     Indication: Bipolar disorder
     Route: 065
  2. QUETIAPINE [Suspect]
     Active Substance: QUETIAPINE
     Indication: Bipolar disorder
     Route: 065
  3. QUETIAPINE [Suspect]
     Active Substance: QUETIAPINE
     Indication: Bipolar disorder
     Route: 065

REACTIONS (2)
  - Hypersexuality [Recovered/Resolved]
  - Drug ineffective [Recovered/Resolved]
